FAERS Safety Report 6292998-4 (Version None)
Quarter: 2009Q3

REPORT INFORMATION
  Report Type: 
  Country: None (occurrence: None)
  Receive Date: 20090731
  Receipt Date: 20090722
  Transmission Date: 20100115
  Serious: Yes (Death)
  Sender: FDA-Public Use
  Company Number: JP-MERCK-0907USA04902

PATIENT
  Age: 47 Year
  Sex: Male

DRUGS (2)
  1. PRIMAXIN [Suspect]
     Indication: LYMPHOMA
     Route: 041
  2. AMPHOTERICIN B [Suspect]
     Indication: LYMPHOMA
     Route: 065

REACTIONS (2)
  - RESPIRATORY FAILURE [None]
  - STEVENS-JOHNSON SYNDROME [None]
